FAERS Safety Report 9710537 (Version 2)
Quarter: 2013Q4

REPORT INFORMATION
  Report Type: Spontaneous
  Country: US (occurrence: US)
  Receive Date: 20131126
  Receipt Date: 20131126
  Transmission Date: 20140711
  Serious: No
  Sender: FDA-Public Use
  Company Number: US-BRISTOL-MYERS SQUIBB COMPANY-18873331

PATIENT
  Age: 59 Year
  Sex: Female
  Weight: 22.68 kg

DRUGS (1)
  1. BYETTA [Suspect]
     Indication: TYPE 2 DIABETES MELLITUS

REACTIONS (3)
  - Injection site rash [Unknown]
  - Injection site discolouration [Unknown]
  - Constipation [Unknown]
